FAERS Safety Report 10049154 (Version 1)
Quarter: 2014Q2

REPORT INFORMATION
  Report Type: Report from Study
  Country: US (occurrence: US)
  Receive Date: 20140401
  Receipt Date: 20140401
  Transmission Date: 20141212
  Serious: Yes (Other)
  Sender: FDA-Public Use
  Company Number: US-ROCHE-1369988

PATIENT
  Sex: Male
  Weight: 43 kg

DRUGS (1)
  1. NUTROPIN AQ [Suspect]
     Indication: GROWTH HORMONE DEFICIENCY
     Dosage: QD
     Route: 058

REACTIONS (3)
  - Asperger^s disorder [Unknown]
  - Scoliosis [Unknown]
  - Arthralgia [Unknown]
